FAERS Safety Report 6544247-7 (Version None)
Quarter: 2010Q1

REPORT INFORMATION
  Report Type: 
  Country: None (occurrence: None)
  Receive Date: 20100119
  Receipt Date: 20100119
  Transmission Date: 20100710
  Serious: Yes (Other)
  Sender: FDA-Public Use
  Company Number: None

PATIENT
  Age: 62 Year
  Sex: Female

DRUGS (1)
  1. RESTASIS [Suspect]
     Indication: PROPHYLAXIS AGAINST GRAFT VERSUS HOST DISEASE
     Dosage: 1 DROP TWICE DAILY SUBCONJUNCTIVAL
     Route: 057
     Dates: start: 20090714, end: 20100111

REACTIONS (1)
  - CONDITION AGGRAVATED [None]
